FAERS Safety Report 5895877 (Version 2)
Quarter: 2020Q3

REPORT INFORMATION
  Report Type: Report from Study
  Country: US (occurrence: US)
  Receive Date: 20051011
  Receipt Date: 20051230
  Transmission Date: 20201105
  Serious: Yes (Death, Hospitalization)
  Sender: FDA-Public Use
  Company Number: US-JNJFOC-20050905722

PATIENT
  Age: 70 Year
  Sex: Male
  Weight: 55.34 kg

DRUGS (9)
  1. MS CONTIN [Concomitant]
     Active Substance: MORPHINE SULFATE
  2. PAMIDRONATE DISODIUM. [Concomitant]
     Active Substance: PAMIDRONATE DISODIUM
     Dosage: GIVEN MONTHLY
  3. VELCADE [Suspect]
     Active Substance: BORTEZOMIB
     Route: 042
  4. VELCADE [Suspect]
     Active Substance: BORTEZOMIB
     Route: 042
  5. DOXIL [Suspect]
     Active Substance: DOXORUBICIN HYDROCHLORIDE
     Indication: PLASMA CELL MYELOMA
     Route: 042
  6. MORPHINE SULFATE. [Concomitant]
     Active Substance: MORPHINE SULFATE
     Dosage: AS NECESSARY
  7. LACTULOSE. [Concomitant]
     Active Substance: LACTULOSE
     Dosage: 15?30 MG ORAL DAILY
  8. DOXIL [Suspect]
     Active Substance: DOXORUBICIN HYDROCHLORIDE
     Route: 042
  9. VELCADE [Suspect]
     Active Substance: BORTEZOMIB
     Indication: PLASMA CELL MYELOMA
     Route: 042

REACTIONS (10)
  - Alanine aminotransferase increased [None]
  - Aspartate aminotransferase increased [None]
  - Weight decreased [None]
  - Acute kidney injury [Fatal]
  - Confusional state [None]
  - Plasma cell myeloma [None]
  - Performance status decreased [None]
  - Tumour lysis syndrome [Fatal]
  - Neoplasm malignant [None]
  - Oedema peripheral [None]

NARRATIVE: CASE EVENT DATE: 20050921
